FAERS Safety Report 23105661 (Version 1)
Quarter: 2023Q4

REPORT INFORMATION
  Report Type: Spontaneous
  Country: US (occurrence: None)
  Receive Date: 20231023
  Receipt Date: 20231023
  Transmission Date: 20240110
  Serious: Yes (Hospitalization)
  Sender: FDA-Public Use
  Company Number: None

PATIENT
  Age: 78 Year
  Sex: Male
  Weight: 85 kg

DRUGS (1)
  1. WARFARIN SODIUM [Suspect]
     Active Substance: WARFARIN SODIUM
     Dates: start: 20040612, end: 20230106

REACTIONS (4)
  - Anticoagulation drug level above therapeutic [None]
  - Therapy interrupted [None]
  - Therapy change [None]
  - Faeces discoloured [None]

NARRATIVE: CASE EVENT DATE: 20221011
